FAERS Safety Report 4911053-6 (Version None)
Quarter: 2006Q1

REPORT INFORMATION
  Report Type: 
  Country: None (occurrence: None)
  Receive Date: 20060214
  Receipt Date: 20001016
  Transmission Date: 20060701
  Serious: Yes (Hospitalization)
  Sender: FDA-Public Use
  Company Number: US-MERCK-00101282

PATIENT
  Age: 58 Year
  Sex: Male
  Weight: 106 kg

DRUGS (2)
  1. VIOXX [Suspect]
     Indication: INFLAMMATION
     Route: 048
     Dates: start: 20010101, end: 20040101
  2. VIOXX [Suspect]
     Indication: PAIN
     Route: 048
     Dates: start: 20010101, end: 20040101

REACTIONS (11)
  - ACUTE MYOCARDIAL INFARCTION [None]
  - ADVERSE DRUG REACTION [None]
  - ANGINA UNSTABLE [None]
  - CHILLS [None]
  - CORONARY ARTERY OCCLUSION [None]
  - DIZZINESS [None]
  - GENERAL SYMPTOM [None]
  - HEART INJURY [None]
  - HYPERTENSION [None]
  - NAUSEA [None]
  - STENT OCCLUSION [None]
